FAERS Safety Report 7529880-8 (Version None)
Quarter: 2011Q2

REPORT INFORMATION
  Report Type: 
  Country: None (occurrence: None)
  Receive Date: 20110607
  Receipt Date: 20110602
  Transmission Date: 20111010
  Serious: Yes (Hospitalization)
  Sender: FDA-Public Use
  Company Number: BE-TEVA-281988ISR

PATIENT
  Age: 80 Year
  Sex: Male

DRUGS (8)
  1. TERAZOSIN [Concomitant]
  2. LITHIUM CARBONATE [Interacting]
     Dosage: 750 MILLIGRAM;
  3. BISOPROLOL FUMARATE [Concomitant]
  4. FELODIPINE [Concomitant]
  5. CETIRIZINE HCL [Concomitant]
  6. FUROSEMIDE [Suspect]
     Dosage: 40 MILLIGRAM;
  7. POLYETHYLENE GLYCOL [Concomitant]
  8. OLANZAPINE [Concomitant]

REACTIONS (3)
  - DRUG INTERACTION [None]
  - CAMPYLOBACTER GASTROENTERITIS [None]
  - NEPHROGENIC DIABETES INSIPIDUS [None]
